FAERS Safety Report 14477359 (Version 1)
Quarter: 2018Q1

REPORT INFORMATION
  Report Type: Report from Study
  Country: US (occurrence: US)
  Receive Date: 20180201
  Receipt Date: 20180201
  Transmission Date: 20180509
  Serious: No
  Sender: FDA-Public Use
  Company Number: US-EXELIXIS-CABO-17010515

PATIENT
  Sex: Male

DRUGS (10)
  1. CLOPIDOGREL [Concomitant]
     Active Substance: CLOPIDOGREL BISULFATE
  2. LISINOPRIL. [Concomitant]
     Active Substance: LISINOPRIL
  3. CABOMETYX [Suspect]
     Active Substance: CABOZANTINIB S-MALATE
     Indication: RENAL CANCER
     Dosage: 60 MG, QD
     Route: 048
     Dates: start: 20170829
  4. CARVEDILOL. [Concomitant]
     Active Substance: CARVEDILOL
  5. PREDNISONE. [Concomitant]
     Active Substance: PREDNISONE
  6. XARELTO [Concomitant]
     Active Substance: RIVAROXABAN
  7. LEVOTHYROXIN [Concomitant]
     Active Substance: LEVOTHYROXINE
  8. LEVOFLOXACIN. [Concomitant]
     Active Substance: LEVOFLOXACIN
  9. HYDROCODONE/ACETAMINOPHEN [Concomitant]
     Active Substance: ACETAMINOPHEN\HYDROCODONE
  10. FUROSEMIDE. [Concomitant]
     Active Substance: FUROSEMIDE

REACTIONS (12)
  - Peripheral swelling [Recovered/Resolved]
  - Abdominal pain upper [Unknown]
  - Dysgeusia [Not Recovered/Not Resolved]
  - Pneumonia [Not Recovered/Not Resolved]
  - Glossodynia [Unknown]
  - Diarrhoea [Unknown]
  - Lip pain [Unknown]
  - Dehydration [Unknown]
  - Fatigue [Unknown]
  - Oral pain [Unknown]
  - Nausea [Unknown]
  - Dizziness [Not Recovered/Not Resolved]
